FAERS Safety Report 7430404-4 (Version None)
Quarter: 2011Q2

REPORT INFORMATION
  Report Type: 
  Country: None (occurrence: None)
  Receive Date: 20110421
  Receipt Date: 20100308
  Transmission Date: 20111010
  Serious: No
  Sender: FDA-Public Use
  Company Number: US-ASTRAZENECA-2010SE09920

PATIENT
  Sex: Female

DRUGS (3)
  1. BYSTOLIC [Suspect]
     Route: 065
  2. TOPROL-XL [Suspect]
     Route: 048
  3. DIGOXIN [Suspect]
     Route: 065

REACTIONS (1)
  - DRUG INTOLERANCE [None]
